FAERS Safety Report 6163057-6 (Version None)
Quarter: 2009Q2

REPORT INFORMATION
  Report Type: 
  Country: None (occurrence: None)
  Receive Date: 20090422
  Receipt Date: 20090415
  Transmission Date: 20091009
  Serious: Yes (Hospitalization)
  Sender: FDA-Public Use
  Company Number: US-BAYER-200918460NA

PATIENT
  Sex: Male

DRUGS (1)
  1. BETASERON [Suspect]
     Indication: DRUG USE FOR UNKNOWN INDICATION

REACTIONS (3)
  - ABASIA [None]
  - MOTOR DYSFUNCTION [None]
  - MULTIPLE SCLEROSIS [None]
